FAERS Safety Report 4731745-1 (Version None)
Quarter: 2005Q3

REPORT INFORMATION
  Report Type: 
  Country: None (occurrence: None)
  Receive Date: 20050725
  Receipt Date: 20041105
  Transmission Date: 20060218
  Serious: Yes (Disabling)
  Sender: FDA-Public Use
  Company Number: WAES 0306USA00642

PATIENT
  Age: 46 Year
  Sex: Female
  Weight: 142.8831 kg

DRUGS (10)
  1. VIOXX [Suspect]
     Dosage: PO
     Route: 048
  2. ATROVENT [Concomitant]
  3. DARVOCET-N 100 [Concomitant]
  4. KLOR-CON [Concomitant]
  5. LASIX [Concomitant]
  6. LODINE [Concomitant]
  7. NAPROSYN [Concomitant]
  8. SEREVENT [Concomitant]
  9. VENTOLIN [Concomitant]
  10. VICODIN [Concomitant]

REACTIONS (4)
  - ADVERSE EVENT [None]
  - DYSPNOEA [None]
  - PAIN IN EXTREMITY [None]
  - WHEEZING [None]
